FAERS Safety Report 6235409-7 (Version None)
Quarter: 2009Q2

REPORT INFORMATION
  Report Type: 
  Country: None (occurrence: None)
  Receive Date: 20090618
  Receipt Date: 20090330
  Transmission Date: 20091009
  Serious: No
  Sender: FDA-Public Use
  Company Number: US-ASTRAZENECA-2009UW08029

PATIENT
  Sex: Male

DRUGS (1)
  1. ENTOCORT EC [Suspect]
     Indication: GASTROINTESTINAL DISORDER
     Route: 048
     Dates: start: 20090101

REACTIONS (7)
  - DRY EYE [None]
  - DRY MOUTH [None]
  - EAR PAIN [None]
  - MYALGIA [None]
  - NASOPHARYNGITIS [None]
  - PRURITUS [None]
  - SKIN BURNING SENSATION [None]
